FAERS Safety Report 18736321 (Version 1)
Quarter: 2021Q1

REPORT INFORMATION
  Report Type: Spontaneous
  Country: FR (occurrence: FR)
  Receive Date: 20210113
  Receipt Date: 20210113
  Transmission Date: 20210419
  Serious: Yes (Life-Threatening)
  Sender: FDA-Public Use
  Company Number: FR-009507513-2101FRA004747

PATIENT
  Age: 66 Year
  Sex: Male

DRUGS (6)
  1. XYLOCAINE [Suspect]
     Active Substance: LIDOCAINE HYDROCHLORIDE
     Indication: GENERAL ANAESTHESIA
     Dosage: 100 MILLIGRAM, ONCE (1 TOTAL)
     Route: 042
     Dates: start: 20190905
  2. CELESTENE 4MG/1ML [Suspect]
     Active Substance: BETAMETHASONE
     Indication: GENERAL ANAESTHESIA
     Dosage: 4 MILLIGRAM, ONCE (1 TOTAL), STRENGTH: 4 MG/1 ML, SOLUTION INJECTABLE
     Route: 042
     Dates: start: 20190905
  3. ROCURONIUM BROMIDE. [Suspect]
     Active Substance: ROCURONIUM BROMIDE
     Indication: GENERAL ANAESTHESIA
     Dosage: 35 MILLIGRAM, ONCE (1 TOTAL)
     Route: 042
     Dates: start: 20190905
  4. CEFAZOLIN [Suspect]
     Active Substance: CEFAZOLIN
     Indication: PROPHYLAXIS
     Dosage: 2 GRAM, ONCE (1 TOTAL)
     Route: 042
     Dates: start: 20190905
  5. SUFENTANIL [Suspect]
     Active Substance: SUFENTANIL
     Indication: INDUCTION OF ANAESTHESIA
     Dosage: 10 MICROGRAM, ONCE (1 TOTAL)
     Route: 042
     Dates: start: 20190905
  6. PROPOFOL. [Suspect]
     Active Substance: PROPOFOL
     Indication: GENERAL ANAESTHESIA
     Dosage: 110 MILLIGRAM, ONCE (1 TOTAL)
     Route: 042
     Dates: start: 20190905

REACTIONS (2)
  - Bronchospasm [Recovered/Resolved]
  - Anaphylactic shock [Recovered/Resolved]

NARRATIVE: CASE EVENT DATE: 20190905
